FAERS Safety Report 7968116-0 (Version None)
Quarter: 2011Q4

REPORT INFORMATION
  Report Type: 
  Country: None (occurrence: None)
  Receive Date: 20111209
  Receipt Date: 20111125
  Transmission Date: 20120403
  Serious: Yes (Other)
  Sender: FDA-Public Use
  Company Number: SE-CELGENEUS-150-50794-11043360

PATIENT
  Sex: Male

DRUGS (5)
  1. TENORMIN [Concomitant]
     Route: 065
  2. FINASTERID [Concomitant]
     Route: 065
  3. VIDAZA [Suspect]
     Route: 065
     Dates: start: 20100926, end: 20110303
  4. OMEPRAZOLE [Concomitant]
     Route: 065
  5. LEVOXIN [Concomitant]
     Route: 065

REACTIONS (1)
  - FAT NECROSIS [None]
